FAERS Safety Report 4694380-X (Version None)
Quarter: 2005Q2

REPORT INFORMATION
  Report Type: 
  Country: None (occurrence: None)
  Receive Date: 20050620
  Receipt Date: 20050609
  Transmission Date: 20051028
  Serious: Yes (Other)
  Sender: FDA-Public Use
  Company Number: PHBS2005BE08409

PATIENT
  Age: 78 Year
  Sex: Male

DRUGS (6)
  1. AREDIA [Suspect]
     Dosage: 60 MG, QMO
     Route: 042
     Dates: start: 20010601
  2. MELPHALAN [Concomitant]
     Route: 065
     Dates: start: 20010601
  3. PREDNISONE TAB [Concomitant]
     Dosage: 100 MG/D
     Route: 065
     Dates: start: 20040701
  4. ALKERAN [Concomitant]
     Route: 065
     Dates: start: 20040701
  5. EPOGEN [Concomitant]
     Route: 065
     Dates: start: 20040701
  6. EPOGEN [Concomitant]
     Dates: start: 20050401

REACTIONS (16)
  - ACTINOMYCOSIS [None]
  - ANAEMIA [None]
  - ASEPTIC NECROSIS BONE [None]
  - HAEMATEMESIS [None]
  - HYPOCALCAEMIA [None]
  - IMPAIRED HEALING [None]
  - MALIGNANT NEOPLASM PROGRESSION [None]
  - NEPHROLITHIASIS [None]
  - OESOPHAGITIS [None]
  - OSTEITIS [None]
  - OSTEOMYELITIS [None]
  - PRIMARY SEQUESTRUM [None]
  - PURULENT DISCHARGE [None]
  - TOOTH EXTRACTION [None]
  - TOOTH INFECTION [None]
  - WOUND DEBRIDEMENT [None]
